FAERS Safety Report 25442333 (Version 1)
Quarter: 2025Q2

REPORT INFORMATION
  Report Type: Report from Study
  Country: IN (occurrence: IN)
  Receive Date: 20250616
  Receipt Date: 20250616
  Transmission Date: 20250717
  Serious: Yes (Other)
  Sender: DAIICHI
  Company Number: IN-AstraZeneca-CH-00885993A

PATIENT
  Age: 54 Year
  Sex: Male

DRUGS (1)
  1. ENHERTU [Suspect]
     Active Substance: FAM-TRASTUZUMAB DERUXTECAN-NXKI
     Indication: Oesophageal adenocarcinoma
     Dosage: 300 MG, ONCE EVERY 3 WK
     Route: 041

REACTIONS (5)
  - Cerebral thrombosis [Unknown]
  - Blood disorder [Unknown]
  - Nervous system disorder [Unknown]
  - Amnesia [Unknown]
  - White blood cell count decreased [Unknown]
